FAERS Safety Report 9677789 (Version 1)
Quarter: 2013Q4

REPORT INFORMATION
  Report Type: Spontaneous
  Country: US (occurrence: US)
  Receive Date: 20131108
  Receipt Date: 20131108
  Transmission Date: 20140711
  Serious: Yes (Hospitalization, Other)
  Sender: FDA-Public Use
  Company Number: US-B.I. PHARMACEUTICALS,INC./RIDGEFIELD-2013-BI-35962YA

PATIENT
  Age: 61 Year
  Sex: Male
  Weight: 135 kg

DRUGS (13)
  1. TAMSULOSIN CAPSULES [Suspect]
     Indication: PRODUCT USED FOR UNKNOWN INDICATION
     Route: 065
  2. PROGRAF (TACROLIMUS) CAPSULE [Suspect]
     Indication: RENAL TRANSPLANT
     Dosage: 3 MG
     Route: 048
     Dates: start: 20051005
  3. CELLCEPT [Concomitant]
     Route: 065
  4. NOVOLOG (INSULIN ASPART) [Concomitant]
     Route: 065
  5. CYMBALTA (DULOXETINE HYDROCHLORIDE) [Concomitant]
     Route: 065
  6. LASIX [Concomitant]
     Route: 065
  7. ZOCOR (SIMVASTATIN) [Concomitant]
     Route: 065
  8. AVIDART (DUTASTERIDE) [Concomitant]
     Route: 065
  9. FISH OIL [Concomitant]
     Route: 065
  10. BABY ASPIRIN [Concomitant]
     Route: 065
  11. ULORIC (FEBUXOSTAT) [Concomitant]
     Route: 065
  12. LANTUS (INSULIN GLARGINE) [Concomitant]
     Route: 065
  13. HUMULIN N (INSULIN HUMAN) [Concomitant]
     Route: 065

REACTIONS (10)
  - Loss of consciousness [Unknown]
  - Ankle fracture [Unknown]
  - Loss of consciousness [Unknown]
  - Lower limb fracture [Unknown]
  - Nasal operation [Unknown]
  - Loss of consciousness [Unknown]
  - Head injury [Unknown]
  - Neck injury [Unknown]
  - Sepsis [Unknown]
  - Tooth infection [Recovered/Resolved]
